FAERS Safety Report 8791501 (Version 1)
Quarter: 2012Q4

REPORT INFORMATION
  Report Type: Spontaneous
  Country: US (occurrence: None)
  Receive Date: 20120912
  Receipt Date: 20120912
  Transmission Date: 20130627
  Serious: Yes (Death)
  Sender: FDA-Public Use
  Company Number: 2012-474

PATIENT
  Age: 41 Year
  Sex: Female

DRUGS (5)
  1. FAZACLO [Suspect]
     Route: 048
     Dates: start: 20110519, end: 20120711
  2. GEODON (ZIPRASIDONE HYDROCHLORIDE) [Concomitant]
  3. ZOLOFT (SERTRALINE HYDROCHLORIDE) [Concomitant]
  4. TRAZODONE (TRAZODONE HYDROCHLORIDE) [Concomitant]
  5. TOPAMAX (TOPIRAMATE) [Concomitant]

REACTIONS (1)
  - Hepatic failure [None]
